FAERS Safety Report 6694454-8 (Version None)
Quarter: 2010Q2

REPORT INFORMATION
  Report Type: 
  Country: None (occurrence: None)
  Receive Date: 20100423
  Receipt Date: 20100415
  Transmission Date: 20101027
  Serious: Yes (Hospitalization)
  Sender: FDA-Public Use
  Company Number: DE-MPIJNJ-2010-02203

PATIENT

DRUGS (6)
  1. VELCADE [Suspect]
     Indication: MULTIPLE MYELOMA
     Dosage: 2 MG, UNK
     Route: 042
     Dates: start: 20100126, end: 20100205
  2. GRANISETRON [Concomitant]
     Indication: CHEMOTHERAPY
     Dosage: 1 MG, UNK
     Route: 042
     Dates: start: 20100126, end: 20100205
  3. DEXAMETHASONE [Concomitant]
     Indication: MULTIPLE MYELOMA
     Dosage: 16 MG, UNK
     Route: 048
     Dates: start: 20100126, end: 20100206
  4. BISOPROLOL [Concomitant]
     Dosage: 5 MG, UNK
     Route: 048
  5. AMLODIPIN                          /00972401/ [Concomitant]
     Dosage: 5 MG, UNK
     Route: 048
  6. ACETYLSALICYLIC ACID [Suspect]
     Dosage: 100 MG, UNK
     Route: 048

REACTIONS (6)
  - ASTHENIA [None]
  - GENERAL PHYSICAL HEALTH DETERIORATION [None]
  - LUMBAR VERTEBRAL FRACTURE [None]
  - NAUSEA [None]
  - RENAL FAILURE [None]
  - URINARY TRACT INFECTION [None]
